FAERS Safety Report 17752299 (Version 1)
Quarter: 2020Q2

REPORT INFORMATION
  Report Type: Spontaneous
  Country: RO (occurrence: RO)
  Receive Date: 20200506
  Receipt Date: 20200506
  Transmission Date: 20200714
  Serious: Yes (Other)
  Sender: FDA-Public Use
  Company Number: NVSC2020RO120922

PATIENT
  Age: 67 Year
  Sex: Male

DRUGS (2)
  1. AXITINIB [Suspect]
     Active Substance: AXITINIB
     Indication: CLEAR CELL RENAL CELL CARCINOMA
     Dosage: 5 MG, 2X/DAY
     Route: 048
     Dates: start: 201910
  2. ZOLEDRONIC ACID [Suspect]
     Active Substance: ZOLEDRONIC ACID
     Indication: CLEAR CELL RENAL CELL CARCINOMA
     Dosage: 3 MG, / 28 DAYS (DOSE CALCULATED BASED ON CREATININE CLEARANCE)
     Route: 065
     Dates: start: 201910

REACTIONS (6)
  - Decreased appetite [Unknown]
  - Ejection fraction decreased [Unknown]
  - Essential hypertension [Unknown]
  - Hypothyroidism [Unknown]
  - Fatigue [Unknown]
  - Palmar-plantar erythrodysaesthesia syndrome [Unknown]
